FAERS Safety Report 9199601 (Version 1)
Quarter: 2013Q1

REPORT INFORMATION
  Report Type: Spontaneous
  Country: US (occurrence: US)
  Receive Date: 20130329
  Receipt Date: 20130329
  Transmission Date: 20140127
  Serious: No
  Sender: FDA-Public Use
  Company Number: US-GLAXOSMITHKLINE-A1010163A

PATIENT
  Age: 48 Year
  Sex: Female

DRUGS (7)
  1. BENLYSTA [Suspect]
     Indication: SYSTEMIC LUPUS ERYTHEMATOSUS
     Route: 042
     Dates: start: 201209
  2. PLAQUENIL [Concomitant]
  3. WELLBUTRIN XL [Concomitant]
  4. TOPOMAX [Concomitant]
  5. FOLIC ACID [Concomitant]
  6. VITAMIN D [Concomitant]
  7. BIOTIN [Concomitant]

REACTIONS (4)
  - Fatigue [Unknown]
  - Hypersomnia [Unknown]
  - Myalgia [Unknown]
  - Fatigue [Unknown]
